FAERS Safety Report 9984039 (Version 1)
Quarter: 2014Q1

REPORT INFORMATION
  Report Type: Report from Study
  Country: US (occurrence: US)
  Receive Date: 20140307
  Receipt Date: 20140307
  Transmission Date: 20141002
  Serious: No
  Sender: FDA-Public Use
  Company Number: US-ABBVIE-13P-163-1183424-00

PATIENT
  Age: 50 Year
  Sex: Female

DRUGS (17)
  1. HUMIRA [Suspect]
     Indication: COLITIS ULCERATIVE
     Dates: start: 20130923
  2. DELZICOL [Concomitant]
     Indication: COLITIS ULCERATIVE
     Route: 048
  3. BLACK COHOSH [Concomitant]
     Indication: NIGHT SWEATS
  4. DILTIAZEM [Concomitant]
     Indication: HYPERTENSION
     Route: 048
  5. BENAZEPRIL [Concomitant]
     Indication: HYPERTENSION
  6. LASIX [Concomitant]
     Indication: HYPERTENSION
  7. POTASSIUM CHLORIDE [Concomitant]
     Indication: PRODUCT USED FOR UNKNOWN INDICATION
  8. PROTONIX [Concomitant]
     Indication: HIATUS HERNIA
  9. PROTONIX [Concomitant]
     Indication: GASTROOESOPHAGEAL REFLUX DISEASE
  10. VITAMIN D NOS [Concomitant]
     Indication: COLITIS ULCERATIVE
  11. MERCAPTOPURINE [Concomitant]
     Indication: PRODUCT USED FOR UNKNOWN INDICATION
  12. VIIBRYD [Concomitant]
     Indication: DEPRESSION
  13. OXYCODONE / ACETAMINOPHEN [Concomitant]
     Indication: PAIN
     Dosage: 5-325 MG, 1-2 TIMES PER DAY
     Route: 048
  14. OMEGA 3 [Concomitant]
     Indication: SUPPLEMENTATION THERAPY
  15. TURMERIC [Concomitant]
     Indication: PRODUCT USED FOR UNKNOWN INDICATION
  16. FOLIC ACID [Concomitant]
     Indication: COLITIS ULCERATIVE
  17. FOLIC ACID [Concomitant]
     Indication: VITAMIN SUPPLEMENTATION

REACTIONS (3)
  - Fatigue [Not Recovered/Not Resolved]
  - Inappropriate schedule of drug administration [Unknown]
  - Inappropriate schedule of drug administration [Recovered/Resolved]
